FAERS Safety Report 15698046 (Version 1)
Quarter: 2018Q4

REPORT INFORMATION
  Report Type: Report from Study
  Country: None (occurrence: US)
  Receive Date: 20181207
  Receipt Date: 20181207
  Transmission Date: 20190205
  Serious: Yes (Other)
  Sender: FDA-Public Use
  Company Number: US-ABBVIE-18K-163-2558889-00

PATIENT
  Age: 54 Year
  Sex: Male
  Weight: 50.39 kg

DRUGS (8)
  1. HYDROCHLOROTHIAZIDE. [Concomitant]
     Active Substance: HYDROCHLOROTHIAZIDE
     Indication: HYPERTENSION
  2. HUMIRA [Suspect]
     Active Substance: ADALIMUMAB
     Route: 058
     Dates: start: 2017, end: 201712
  3. HUMIRA [Suspect]
     Active Substance: ADALIMUMAB
     Route: 058
     Dates: start: 201809
  4. FOLIC ACID. [Concomitant]
     Active Substance: FOLIC ACID
     Indication: RHEUMATOID ARTHRITIS
  5. HUMIRA [Suspect]
     Active Substance: ADALIMUMAB
     Indication: RHEUMATOID ARTHRITIS
     Route: 058
     Dates: start: 201602, end: 201708
  6. RASUVO [Suspect]
     Active Substance: METHOTREXATE SODIUM
     Route: 058
     Dates: start: 20181130
  7. DICLOFENAC [Concomitant]
     Active Substance: DICLOFENAC
     Indication: RHEUMATOID ARTHRITIS
  8. RASUVO [Suspect]
     Active Substance: METHOTREXATE SODIUM
     Indication: RHEUMATOID ARTHRITIS
     Route: 048
     Dates: end: 20180525

REACTIONS (6)
  - Foot deformity [Recovered/Resolved]
  - Joint swelling [Not Recovered/Not Resolved]
  - Drug effect decreased [Unknown]
  - Nausea [Recovering/Resolving]
  - Foot deformity [Recovered/Resolved]
  - Pain [Not Recovered/Not Resolved]

NARRATIVE: CASE EVENT DATE: 2018
